FAERS Safety Report 7352778-5 (Version None)
Quarter: 2011Q1

REPORT INFORMATION
  Report Type: 
  Country: None (occurrence: None)
  Receive Date: 20110315
  Receipt Date: 20091008
  Transmission Date: 20110831
  Serious: Yes (Other)
  Sender: FDA-Public Use
  Company Number: PHHY2009DE67495

PATIENT
  Sex: Female

DRUGS (3)
  1. CORTISONE [Suspect]
  2. EXTAVIA [Suspect]
     Dosage: UNK
     Dates: start: 20090813
  3. ANTIBIOTICS [Suspect]

REACTIONS (4)
  - FATIGUE [None]
  - SOMNOLENCE [None]
  - RESTLESSNESS [None]
  - SKIN NECROSIS [None]
